FAERS Safety Report 9351415 (Version 1)
Quarter: 2013Q2

REPORT INFORMATION
  Report Type: Spontaneous
  Country: US (occurrence: US)
  Receive Date: 20130617
  Receipt Date: 20130617
  Transmission Date: 20140414
  Serious: Yes (Hospitalization)
  Sender: FDA-Public Use
  Company Number: US-B.I. PHARMACEUTICALS,INC./RIDGEFIELD-2013-BI-16634BP

PATIENT
  Age: 84 Year
  Sex: Female
  Weight: 67 kg

DRUGS (8)
  1. PRADAXA [Suspect]
     Indication: ATRIAL FIBRILLATION
     Dosage: 300 MG
     Route: 048
     Dates: start: 201103, end: 20130203
  2. PRADAXA [Suspect]
     Dosage: 300 MG
     Route: 048
     Dates: start: 20130205, end: 20130210
  3. PRADAXA [Suspect]
     Dosage: 300 MG
     Route: 048
     Dates: start: 20130218
  4. METOPROLOL [Concomitant]
     Indication: ATRIAL FIBRILLATION
     Dosage: 50 MG
     Route: 048
     Dates: start: 200903
  5. DILTIAZEM [Concomitant]
     Indication: ATRIAL FIBRILLATION
     Dosage: 240 MG
     Route: 048
     Dates: start: 200903
  6. CALCIUM AND VITAMIN D [Concomitant]
     Indication: SUPPLEMENTATION THERAPY
     Dosage: 2 ANZ
     Route: 048
     Dates: start: 2008
  7. GLUCOSAMINE AND CONDROITIN [Concomitant]
     Indication: ARTHRALGIA
     Dosage: 2 ANZ
     Route: 048
     Dates: start: 2008
  8. FISH OIL [Concomitant]
     Indication: CARDIOVASCULAR EVENT PROPHYLAXIS
     Dosage: 1000 MG
     Route: 048
     Dates: start: 2009

REACTIONS (2)
  - Haematochezia [Recovered/Resolved]
  - Large intestine polyp [Recovered/Resolved]
